FAERS Safety Report 7764939-1 (Version None)
Quarter: 2011Q3

REPORT INFORMATION
  Report Type: 
  Country: None (occurrence: None)
  Receive Date: 20110921
  Receipt Date: 20110906
  Transmission Date: 20111222
  Serious: Yes (Life-Threatening, Hospitalization)
  Sender: FDA-Public Use
  Company Number: US-JNJFOC-20071002080

PATIENT
  Sex: Female
  Weight: 24.1 kg

DRUGS (4)
  1. CHILDREN'S TYLENOL PLUS COLD [Suspect]
     Indication: OROPHARYNGEAL PAIN
  2. CHILDREN'S TYLENOL PLUS COLD [Suspect]
     Indication: NASAL CONGESTION
  3. CHILDREN'S TYLENOL PLUS COLD [Suspect]
     Indication: PYREXIA
  4. CHILDREN'S TYLENOL PLUS COLD [Suspect]
     Indication: COUGH

REACTIONS (1)
  - TOXIC EPIDERMAL NECROLYSIS [None]
